APPROVED DRUG PRODUCT: SILODOSIN
Active Ingredient: SILODOSIN
Strength: 4MG
Dosage Form/Route: CAPSULE;ORAL
Application: A204793 | Product #001 | TE Code: AB
Applicant: HETERO LABS LTD UNIT V
Approved: Feb 14, 2020 | RLD: No | RS: No | Type: RX